FAERS Safety Report 15251849 (Version 13)
Quarter: 2019Q2

REPORT INFORMATION
  Report Type: Spontaneous
  Country: US (occurrence: US)
  Receive Date: 20180807
  Receipt Date: 20190619
  Transmission Date: 20190711
  Serious: Yes (Hospitalization, Other)
  Sender: FDA-Public Use
  Company Number: US-PFIZER INC-2018317344

PATIENT
  Age: 68 Year
  Sex: Female
  Weight: 47 kg

DRUGS (15)
  1. LYRICA [Suspect]
     Active Substance: PREGABALIN
     Indication: PAIN IN EXTREMITY
     Dosage: 100 MG, 4X/DAY
     Route: 048
     Dates: end: 2018
  2. LYRICA [Suspect]
     Active Substance: PREGABALIN
     Indication: NEURALGIC AMYOTROPHY
     Dosage: 100 MG, 4X/DAY (400MG A DAY DOSE)
     Route: 048
     Dates: start: 201604
  3. LYRICA [Suspect]
     Active Substance: PREGABALIN
     Indication: NERVE INJURY
     Dosage: 100 MG, 4X/DAY
     Route: 048
     Dates: start: 2018
  4. ATIVAN [Concomitant]
     Active Substance: LORAZEPAM
     Dosage: UNK
  5. LYRICA [Suspect]
     Active Substance: PREGABALIN
     Indication: BRACHIAL PLEXOPATHY
     Dosage: UNK, 6 TIMES A DAY
     Route: 048
  6. LYRICA [Suspect]
     Active Substance: PREGABALIN
     Dosage: 100 MG, 4X/DAY
     Route: 048
     Dates: start: 201605
  7. DILAUDID [Concomitant]
     Active Substance: HYDROMORPHONE HYDROCHLORIDE
     Indication: PAIN MANAGEMENT
     Dosage: 8 MG, AS NEEDED (4MG TABLET BY MOUTH 2 TABLETS BY MOUTH EVERY 8 HOURS AS NEEDED FOR SEVERE PAIN)
     Route: 048
     Dates: start: 201807
  8. LYRICA [Suspect]
     Active Substance: PREGABALIN
     Indication: MUSCULOSKELETAL PAIN
     Dosage: 100 MG, 4X/DAY
     Route: 048
     Dates: start: 2015
  9. LYRICA [Suspect]
     Active Substance: PREGABALIN
     Indication: MONOPLEGIA
     Dosage: 300 MG, DAILY
     Route: 048
  10. METHADONE [Concomitant]
     Active Substance: METHADONE HYDROCHLORIDE
     Dosage: 10 MG, 4X/DAY
     Route: 048
     Dates: start: 201806
  11. HYDROMORPHONE [Concomitant]
     Active Substance: HYDROMORPHONE
     Indication: PAIN
     Dosage: 8 MG, AS NEEDED (4 MG TABLET, 2 TABLETS EVERY 8 HOURS AS NEEDED FOR PAIN BY MOUTH)
     Route: 048
  12. LYRICA [Suspect]
     Active Substance: PREGABALIN
     Dosage: 100 MG, 4X/DAY (4 PILLS FOR 1 DOSE/4 TIMES A DAY)
     Route: 048
     Dates: start: 20180812
  13. LYRICA [Suspect]
     Active Substance: PREGABALIN
     Indication: NEURALGIA
     Dosage: 600 MG, DAILY
     Route: 048
  14. METHADONE [Concomitant]
     Active Substance: METHADONE HYDROCHLORIDE
     Indication: PAIN
     Dosage: 10 MG, 3X/DAY (TABLET THREE TIMES A DAY BY MOUTH/EVERY 8 HOURS)
     Route: 048
  15. LYRICA [Suspect]
     Active Substance: PREGABALIN
     Dosage: 100 MG, 4X/DAY
     Route: 048

REACTIONS (10)
  - Neoplasm progression [Unknown]
  - Product label issue [Unknown]
  - Body height decreased [Unknown]
  - Drug intolerance [Unknown]
  - Leukaemia [Unknown]
  - Therapeutic product effect incomplete [Unknown]
  - Malaise [Unknown]
  - Off label use [Unknown]
  - Product dispensing error [Unknown]
  - Retching [Unknown]

NARRATIVE: CASE EVENT DATE: 2015
